FAERS Safety Report 22606577 (Version 2)
Quarter: 2023Q2

REPORT INFORMATION
  Report Type: Other
  Country: None (occurrence: US)
  Receive Date: 20230615
  Receipt Date: 20230622
  Transmission Date: 20230721
  Serious: Yes (Other)
  Sender: FDA-Public Use
  Company Number: US-B.Braun Medical Inc.-2142753

PATIENT
  Age: 69 Year
  Sex: Male

DRUGS (1)
  1. POTASSIUM CHLORIDE [Suspect]
     Active Substance: POTASSIUM CHLORIDE
     Indication: Blood potassium decreased
     Route: 042

REACTIONS (3)
  - Phlebitis [Recovered/Resolved]
  - Chest pain [Recovered/Resolved]
  - Medication error [Recovered/Resolved]
